FAERS Safety Report 4608426-8 (Version None)
Quarter: 2005Q1

REPORT INFORMATION
  Report Type: 
  Country: None (occurrence: None)
  Receive Date: 20050311
  Receipt Date: 20050311
  Transmission Date: 20050727
  Serious: No
  Sender: FDA-Public Use
  Company Number: None

PATIENT
  Age: 38 Year
  Sex: Female
  Weight: 58.9676 kg

DRUGS (4)
  1. CELEXA [Suspect]
     Indication: DEPRESSION
     Dosage: 60 MG PO
     Route: 048
     Dates: start: 20050128, end: 20050224
  2. METOCLOPRAMIDE [Concomitant]
  3. ACIPHEX [Concomitant]
  4. BENADRYL [Concomitant]

REACTIONS (2)
  - RASH MACULAR [None]
  - RASH PRURITIC [None]
